FAERS Safety Report 5760659-3 (Version None)
Quarter: 2008Q2

REPORT INFORMATION
  Report Type: 
  Country: None (occurrence: None)
  Receive Date: 20080606
  Receipt Date: 20080516
  Transmission Date: 20081010
  Serious: Yes (Other)
  Sender: FDA-Public Use
  Company Number: GB-RANBAXY-2008RR-15630

PATIENT

DRUGS (5)
  1. IBUPROFEN TABLETS [Suspect]
     Indication: ARTHRITIS
     Dosage: 200 MG, BID
     Route: 048
     Dates: start: 20040101
  2. METHOTREXATE [Suspect]
     Indication: ARTHRITIS
     Dosage: 7.5 MG, 1/WEEK
     Route: 058
     Dates: start: 20030801, end: 20040129
  3. PIROXICAM [Suspect]
     Indication: ARTHRITIS
     Dosage: UNK
     Route: 048
     Dates: start: 20040101
  4. IRON [Concomitant]
     Dosage: 5 ML, TID
     Dates: start: 20040801
  5. TRIAMCINOLONE [Concomitant]
     Dosage: UNK
     Dates: start: 20040201

REACTIONS (3)
  - ALANINE AMINOTRANSFERASE INCREASED [None]
  - MUSCULOSKELETAL STIFFNESS [None]
  - SPONDYLITIS [None]
